FAERS Safety Report 8990836 (Version 2)
Quarter: 2013Q1

REPORT INFORMATION
  Report Type: Spontaneous
  Country: DE (occurrence: DE)
  Receive Date: 20121231
  Receipt Date: 20130221
  Transmission Date: 20140127
  Serious: Yes (Death)
  Sender: FDA-Public Use
  Company Number: PHHY2012DE120901

PATIENT
  Sex: Male
  Weight: 75 kg

DRUGS (1)
  1. SANDOSTATIN LAR [Suspect]
     Indication: NEURODEGENERATIVE DISORDER
     Dosage: 30 MG, EVERY MONTH
     Route: 030
     Dates: start: 20090127

REACTIONS (1)
  - Neuroendocrine carcinoma metastatic [Fatal]
